FAERS Safety Report 9377854 (Version 3)
Quarter: 2014Q1

REPORT INFORMATION
  Report Type: Report from Study
  Country: FR (occurrence: FR)
  Receive Date: 20130701
  Receipt Date: 20140220
  Transmission Date: 20141002
  Serious: Yes (Death, Life-Threatening, Hospitalization)
  Sender: FDA-Public Use
  Company Number: FR-BAYER-2013-080321

PATIENT
  Age: 70 Year
  Sex: Female

DRUGS (1)
  1. REGORAFENIB [Suspect]
     Indication: COLORECTAL CANCER METASTATIC
     Dosage: 120 MG, QD
     Route: 048
     Dates: start: 20130613, end: 20130625

REACTIONS (3)
  - Colorectal cancer metastatic [Fatal]
  - Ischaemic stroke [Fatal]
  - Asthenia [Not Recovered/Not Resolved]
